FAERS Safety Report 20992777 (Version 1)
Quarter: 2022Q2

REPORT INFORMATION
  Report Type: Report from Study
  Country: US (occurrence: US)
  Receive Date: 20220622
  Receipt Date: 20220622
  Transmission Date: 20220721
  Serious: Yes (Other)
  Sender: FDA-Public Use
  Company Number: US-BRISTOL-MYERS SQUIBB COMPANY-2022-055254

PATIENT
  Age: 84 Year
  Sex: Female
  Weight: 80.29 kg

DRUGS (6)
  1. REVLIMID [Suspect]
     Active Substance: LENALIDOMIDE
     Indication: Plasma cell myeloma
     Route: 065
  2. REVLIMID [Suspect]
     Active Substance: LENALIDOMIDE
     Indication: Hypogammaglobulinaemia
  3. REVLIMID [Suspect]
     Active Substance: LENALIDOMIDE
     Indication: Myelodysplastic syndrome
  4. REVLIMID [Suspect]
     Active Substance: LENALIDOMIDE
     Indication: Vomiting
  5. REVLIMID [Suspect]
     Active Substance: LENALIDOMIDE
     Indication: Iron deficiency anaemia
  6. REVLIMID [Suspect]
     Active Substance: LENALIDOMIDE
     Indication: Pancytopenia

REACTIONS (1)
  - Renal disorder [Unknown]
